FAERS Safety Report 16283542 (Version 1)
Quarter: 2019Q2

REPORT INFORMATION
  Report Type: Spontaneous
  Country: US (occurrence: US)
  Receive Date: 20190507
  Receipt Date: 20190507
  Transmission Date: 20190711
  Serious: Yes (Other)
  Sender: FDA-Public Use
  Company Number: US-MYLANLABS-2019M1044008

PATIENT
  Age: 5 Year
  Sex: Female

DRUGS (14)
  1. ETOPOSIDE. [Suspect]
     Active Substance: ETOPOSIDE
     Indication: CEREBELLAR TUMOUR
     Dosage: PART OF THE HEAD START IV PROTOCOL
     Route: 065
  2. CISPLATIN. [Suspect]
     Active Substance: CISPLATIN
     Indication: CEREBELLAR TUMOUR
     Dosage: PART OF THE HEAD START IV PROTOCOL
     Route: 065
  3. METHOTREXATE. [Suspect]
     Active Substance: METHOTREXATE
     Indication: CEREBELLAR TUMOUR
     Dosage: PART OF THE HEAD START IV PROTOCOL- HIGH DOSE
     Route: 065
  4. CARBOPLATIN. [Suspect]
     Active Substance: CARBOPLATIN
     Indication: CEREBELLAR TUMOUR
     Dosage: PART OF THE HEAD START IV PROTOCOL
     Route: 065
  5. CARBOPLATIN. [Suspect]
     Active Substance: CARBOPLATIN
     Indication: METASTASES TO SPINE
  6. CYCLOPHOSPHAMIDE. [Suspect]
     Active Substance: CYCLOPHOSPHAMIDE
     Indication: CEREBELLAR TUMOUR
     Dosage: PART OF THE HEAD START IV PROTOCOL
     Route: 065
  7. VINCRISTINE [Suspect]
     Active Substance: VINCRISTINE
     Indication: CEREBELLAR TUMOUR
     Dosage: PART OF THE HEAD START IV PROTOCOL
     Route: 065
  8. CISPLATIN. [Suspect]
     Active Substance: CISPLATIN
     Indication: METASTASES TO SPINE
  9. ETOPOSIDE. [Suspect]
     Active Substance: ETOPOSIDE
     Indication: METASTASES TO SPINE
  10. METHOTREXATE. [Suspect]
     Active Substance: METHOTREXATE
     Indication: METASTASES TO SPINE
  11. THIOTEPA. [Suspect]
     Active Substance: THIOTEPA
     Indication: METASTASES TO SPINE
  12. VINCRISTINE [Suspect]
     Active Substance: VINCRISTINE
     Indication: METASTASES TO SPINE
  13. CYCLOPHOSPHAMIDE. [Suspect]
     Active Substance: CYCLOPHOSPHAMIDE
     Indication: METASTASES TO SPINE
  14. THIOTEPA. [Suspect]
     Active Substance: THIOTEPA
     Indication: CEREBELLAR TUMOUR
     Dosage: PART OF THE HEAD START IV PROTOCOL
     Route: 065

REACTIONS (1)
  - Venoocclusive liver disease [Unknown]
